FAERS Safety Report 9452801 (Version 1)
Quarter: 2013Q3

REPORT INFORMATION
  Report Type: Spontaneous
  Country: IT (occurrence: IT)
  Receive Date: 20130812
  Receipt Date: 20130812
  Transmission Date: 20140515
  Serious: Yes (Disabling)
  Sender: FDA-Public Use
  Company Number: PHHY2013IT085871

PATIENT
  Sex: Female

DRUGS (14)
  1. ZOMETA [Suspect]
     Indication: BREAST CANCER
     Dosage: 1 POSOLOGICAL UNIT, CYCLIC
     Route: 042
     Dates: start: 20120621, end: 20130516
  2. BONDRONAT [Suspect]
     Indication: BREAST CANCER
     Dosage: 50 MG, DAILY
     Route: 048
     Dates: start: 20111103, end: 20120601
  3. XELODA [Concomitant]
     Dosage: UNK UKN, UNK
     Dates: start: 20120622, end: 201306
  4. TYVERB [Concomitant]
     Dosage: UNK UKN, UNK
     Dates: start: 20120621
  5. AXAGON [Concomitant]
     Dosage: UNK UKN, UNK
  6. GLUCOBAY [Concomitant]
     Dosage: UNK UKN, UNK
  7. NOVONORM [Concomitant]
     Dosage: UNK UKN, UNK
  8. EUTIROX [Concomitant]
     Dosage: UNK UKN, UNK
  9. MELATONIN [Concomitant]
     Dosage: UNK UKN, UNK
  10. COENZYME Q10 [Concomitant]
     Dosage: UNK UKN, UNK
  11. VISCUM ALBUM [Concomitant]
     Dosage: UNK UKN, UNK
  12. ASCORBIC ACID [Concomitant]
     Dosage: UNK UKN, UNK
     Route: 042
  13. FEMARA [Concomitant]
     Dosage: UNK UKN, UNK
     Dates: start: 201111, end: 201206
  14. HERCEPTIN [Concomitant]
     Dosage: UNK UKN, 10 CYCLIC
     Dates: start: 20111102, end: 20120510

REACTIONS (1)
  - Osteonecrosis [Not Recovered/Not Resolved]
